APPROVED DRUG PRODUCT: MIGLITOL
Active Ingredient: MIGLITOL
Strength: 25MG
Dosage Form/Route: TABLET;ORAL
Application: A203965 | Product #001
Applicant: WESTMINSTER PHARMACEUTICALS LLC
Approved: Feb 24, 2015 | RLD: No | RS: Yes | Type: RX